FAERS Safety Report 7820392-0 (Version None)
Quarter: 2011Q4

REPORT INFORMATION
  Report Type: 
  Country: None (occurrence: None)
  Receive Date: 20111018
  Receipt Date: 20111007
  Transmission Date: 20120403
  Serious: Yes (Other)
  Sender: FDA-Public Use
  Company Number: DK-NOVOPROD-328881

PATIENT
  Sex: Female
  Weight: 68 kg

DRUGS (1)
  1. VICTOZA [Suspect]
     Indication: LATENT AUTOIMMUNE DIABETES IN ADULTS
     Dosage: UNK
     Dates: start: 20100301, end: 20100301

REACTIONS (5)
  - HYPERSENSITIVITY [None]
  - DYSPNOEA [None]
  - CHEST DISCOMFORT [None]
  - PALPITATIONS [None]
  - NAUSEA [None]
